FAERS Safety Report 14021817 (Version 1)
Quarter: 2017Q3

REPORT INFORMATION
  Report Type: Report from Study
  Country: US (occurrence: US)
  Receive Date: 20170928
  Receipt Date: 20170928
  Transmission Date: 20171128
  Serious: No
  Sender: FDA-Public Use
  Company Number: US-CLOVIS ONCOLOGY-CLO-2017-001004

PATIENT
  Age: 43 Year
  Sex: Female

DRUGS (2)
  1. RUBRACA [Suspect]
     Active Substance: RUCAPARIB CAMSYLATE
     Indication: OVARIAN NEOPLASM
     Dosage: 600 MG, BID
     Route: 048
     Dates: start: 20170223, end: 20170910
  2. RUBRACA [Suspect]
     Active Substance: RUCAPARIB CAMSYLATE
     Indication: BREAST CANCER
     Dosage: 600 MG, BID
     Route: 048
     Dates: start: 20170522

REACTIONS (7)
  - Malignant neoplasm progression [Unknown]
  - Abdominal pain lower [Unknown]
  - Sunburn [Recovered/Resolved]
  - Off label use [Unknown]
  - Tumour marker increased [Unknown]
  - Blood count abnormal [Unknown]
  - Nasopharyngitis [Unknown]

NARRATIVE: CASE EVENT DATE: 2017
